FAERS Safety Report 13585317 (Version 5)
Quarter: 2017Q3

REPORT INFORMATION
  Report Type: Spontaneous
  Country: HU (occurrence: HU)
  Receive Date: 20170526
  Receipt Date: 20170731
  Transmission Date: 20171127
  Serious: Yes (Hospitalization, Other)
  Sender: FDA-Public Use
  Company Number: HU-PFIZER INC-2017223212

PATIENT
  Age: 76 Year
  Sex: Female

DRUGS (3)
  1. SUTENT [Suspect]
     Active Substance: SUNITINIB MALATE
     Indication: RENAL CANCER
     Dosage: 37.5 MG, CYCLIC (DAILY ACCORDING TO 4/2 SCHEMA)
     Route: 048
     Dates: start: 20170509, end: 20170522
  2. ACHILLEA MILLEFOLIUM [Concomitant]
     Active Substance: ACHILLEA MILLEFOLIUM
     Dosage: UNK
  3. FRONTIN [Concomitant]
     Active Substance: ALPRAZOLAM
     Dosage: UNK

REACTIONS (12)
  - Dizziness [Unknown]
  - Fatigue [Unknown]
  - Asthenia [Unknown]
  - Muscular weakness [Unknown]
  - Hyperhidrosis [Recovered/Resolved]
  - Yellow skin [Unknown]
  - Abdominal discomfort [Unknown]
  - Chromaturia [Unknown]
  - General physical health deterioration [Unknown]
  - Malaise [Recovered/Resolved]
  - Decreased appetite [Unknown]
  - Ascites [Unknown]

NARRATIVE: CASE EVENT DATE: 20170517
